FAERS Safety Report 7318324-7 (Version None)
Quarter: 2011Q1

REPORT INFORMATION
  Report Type: 
  Country: None (occurrence: None)
  Receive Date: 20110228
  Receipt Date: 20110217
  Transmission Date: 20110831
  Serious: Yes (Hospitalization, Other)
  Sender: FDA-Public Use
  Company Number: AR-AMGEN-ARGSP2011007654

PATIENT
  Sex: Male

DRUGS (3)
  1. METHOTREXATE SODIUM [Concomitant]
     Dosage: 1 TABLET WEEKLY
  2. ENBREL [Suspect]
     Indication: RHEUMATOID ARTHRITIS
     Dosage: 50 MG, WEEKLY
     Route: 058
     Dates: start: 20100301, end: 20100901
  3. PREDNISONE [Concomitant]
     Dosage: 10 MG, 1X/DAY
     Route: 048

REACTIONS (3)
  - GOITRE [None]
  - THYROID NEOPLASM [None]
  - PNEUMONIA [None]
